FAERS Safety Report 19927992 (Version 1)
Quarter: 2021Q4

REPORT INFORMATION
  Report Type: Spontaneous
  Country: US (occurrence: US)
  Receive Date: 20211006
  Receipt Date: 20211006
  Transmission Date: 20220303
  Serious: Yes (Other)
  Sender: FDA-Public Use
  Company Number: None

PATIENT
  Age: 67 Year
  Sex: Female
  Weight: 55.3 kg

DRUGS (1)
  1. CARBOPLATIN [Suspect]
     Active Substance: CARBOPLATIN
     Indication: Malignant peritoneal neoplasm
     Dosage: ?          OTHER FREQUENCY:EVERY 3 WEEKS;
     Route: 042
     Dates: start: 20180409, end: 20210901

REACTIONS (7)
  - Eye pruritus [None]
  - Rhinorrhoea [None]
  - Nausea [None]
  - Paraesthesia [None]
  - Pruritus [None]
  - Pruritus [None]
  - Pruritus [None]

NARRATIVE: CASE EVENT DATE: 20210811
